FAERS Safety Report 10674593 (Version 1)
Quarter: 2014Q4

REPORT INFORMATION
  Report Type: Spontaneous
  Country: US (occurrence: None)
  Receive Date: 20141224
  Receipt Date: 20141224
  Transmission Date: 20150529
  Serious: Yes (Hospitalization)
  Sender: FDA-Public Use
  Company Number: DL2014-1157

PATIENT
  Age: 23 Year
  Sex: Female

DRUGS (3)
  1. MIFEPRISTONE TABLETS, 200MG [Suspect]
     Active Substance: MIFEPRISTONE
     Indication: ABORTION INDUCED
     Route: 048
     Dates: start: 20140318
  2. METRONIDAZOLE. [Concomitant]
     Active Substance: METRONIDAZOLE
  3. MISOPROSTOL TALETS 200MG [Suspect]
     Active Substance: MISOPROSTOL
     Dosage: 800MCG BUCCAL
     Route: 002
     Dates: start: 20140319

REACTIONS (3)
  - Haemorrhage [None]
  - Pelvic pain [None]
  - Endometritis [None]

NARRATIVE: CASE EVENT DATE: 20140322
